FAERS Safety Report 13069297 (Version 2)
Quarter: 2016Q4

REPORT INFORMATION
  Report Type: Spontaneous
  Country: IT (occurrence: IT)
  Receive Date: 20161228
  Receipt Date: 20161230
  Transmission Date: 20170207
  Serious: Yes (Other)
  Sender: FDA-Public Use
  Company Number: IT-PFIZER INC-2016591189

PATIENT
  Age: 18 Year
  Sex: Female

DRUGS (1)
  1. SOMATROPIN [Suspect]
     Active Substance: SOMATROPIN
     Indication: GROWTH HORMONE DEFICIENCY
     Dosage: 1.21 MG, 1X/DAY

REACTIONS (3)
  - Meningioma [Recovered/Resolved]
  - Recurrent cancer [Recovered/Resolved]
  - Glucose tolerance impaired [Unknown]
